FAERS Safety Report 25604748 (Version 2)
Quarter: 2025Q3

REPORT INFORMATION
  Report Type: Report from Study
  Country: GB (occurrence: GB)
  Receive Date: 20250725
  Receipt Date: 20250918
  Transmission Date: 20251020
  Serious: Yes (Death, Hospitalization, Other)
  Sender: IPSEN BIOPHARMACEUTICALS, INC.
  Company Number: GB-IPSEN Group, Research and Development-2025-16868

PATIENT
  Sex: Male

DRUGS (1)
  1. LANREOTIDE ACETATE [Suspect]
     Active Substance: LANREOTIDE ACETATE
     Indication: Neuroendocrine tumour
     Dosage: LANREOTIDE IPSEN 90MG/0.5ML SOLUTION FOR INJECTION PRE-FILLED SYRINGES (IPSEN LTD) 1 PRE-FILLED DISPOSABLE INJECTION.?ROUTE OF ADMINISTRATION - DEEP SUBCUTANEOUS.
     Route: 058

REACTIONS (5)
  - Death [Fatal]
  - Hospitalisation [Unknown]
  - Arthralgia [Not Recovered/Not Resolved]
  - Mobility decreased [Not Recovered/Not Resolved]
  - Joint swelling [Not Recovered/Not Resolved]
